FAERS Safety Report 7875723-2 (Version None)
Quarter: 2011Q4

REPORT INFORMATION
  Report Type: 
  Country: None (occurrence: None)
  Receive Date: 20111031
  Receipt Date: 20100318
  Transmission Date: 20120403
  Serious: Yes (Hospitalization)
  Sender: FDA-Public Use
  Company Number: NL-TEVA-307044ISR

PATIENT
  Sex: Female
  Weight: 62 kg

DRUGS (10)
  1. MOVICOLON POEDER VOOR DRANK IN SACHET [Concomitant]
     Dosage: 1 DOSAGE FORMS;
     Dates: start: 20091230
  2. FUCIDIN TABLET OMHULD 250MG [Concomitant]
     Dosage: 1500 MILLIGRAM;
     Dates: start: 20100127, end: 20100224
  3. METOPROLOL [Suspect]
     Indication: HYPERTENSION
     Dosage: 100 MILLIGRAM;
     Dates: start: 20100215
  4. FRAGMIN 2500 INJVLST 12.500IE/ML WWSP 0.2ML [Concomitant]
     Dosage: 1 DOSAGE FORMS;
     Dates: start: 20091226
  5. AMLODIPINE MERCK TABLET 5MG [Concomitant]
     Dosage: 10 MILLIGRAM;
     Dates: start: 20101007
  6. DEXAMETHASONE PCH TABLET 4MG [Concomitant]
     Dosage: 8 MILLIGRAM;
     Dates: start: 20100218
  7. ZYVOX [Suspect]
     Indication: INTERVERTEBRAL DISCITIS
     Dates: start: 20100219, end: 20100224
  8. APROVEL TABLET FILMOMHULD 150MG [Concomitant]
     Dosage: 300 MILLIGRAM;
     Dates: start: 20091226
  9. CREMOR TRIAMCINOLONI ACETONIDI 1MG/G [Concomitant]
     Dosage: 1 DOSAGE FORMS;
     Dates: start: 20091230, end: 20100224
  10. NEXIUM [Concomitant]
     Dosage: 40 MILLIGRAM;
     Dates: start: 20091229, end: 20100224

REACTIONS (1)
  - DELIRIUM [None]
